FAERS Safety Report 6395645-6 (Version None)
Quarter: 2009Q4

REPORT INFORMATION
  Report Type: 
  Country: None (occurrence: None)
  Receive Date: 20091009
  Receipt Date: 20091002
  Transmission Date: 20100525
  Serious: Yes (Hospitalization)
  Sender: FDA-Public Use
  Company Number: US-GENENTECH-291713

PATIENT

DRUGS (9)
  1. BLINDED BEVACIZUMAB [Suspect]
     Indication: BREAST CANCER
     Dosage: 10 MG/KG, Q14D
     Route: 042
     Dates: start: 20090611
  2. CYCLOPHOSPHAMIDE [Suspect]
     Indication: BREAST CANCER
     Dosage: 10 MG/KG, Q14D
     Route: 042
     Dates: start: 20090611
  3. DOXORUBICIN HCL [Suspect]
     Indication: BREAST CANCER
     Dosage: 10 MG/KG, Q14D
     Route: 042
     Dates: start: 20090611
  4. BLINDED PACLITAXEL [Suspect]
     Indication: BREAST CANCER
     Dosage: 10 MG/KG, Q14D
     Route: 042
     Dates: start: 20090611
  5. BLINDED PLACEBO [Suspect]
     Indication: BREAST CANCER
     Dosage: 10 MG/KG, Q14D
     Route: 042
     Dates: start: 20090611
  6. DOXORUBICIN HCL [Suspect]
     Indication: BREAST CANCER
     Dosage: 60 MG/M2, Q14D
     Dates: start: 20090611
  7. CYCLOPHOSPHAMIDE [Suspect]
     Indication: BREAST CANCER
     Dosage: 600 MG/M2, Q14D
     Route: 042
     Dates: start: 20090611
  8. NEUPOGEN [Suspect]
     Indication: BREAST CANCER
     Dosage: 5 A?G/KG, Q14D
     Route: 058
  9. PEGFILGRASTIM [Suspect]
     Indication: BREAST CANCER
     Dosage: 6 MG, Q14D
     Route: 058

REACTIONS (5)
  - ALANINE AMINOTRANSFERASE INCREASED [None]
  - DEHYDRATION [None]
  - DIARRHOEA [None]
  - FEBRILE NEUTROPENIA [None]
  - SKIN INFECTION [None]
